FAERS Safety Report 18582131 (Version 3)
Quarter: 2024Q3

REPORT INFORMATION
  Report Type: Report from Study
  Country: US (occurrence: US)
  Receive Date: 20201204
  Receipt Date: 20240912
  Transmission Date: 20241016
  Serious: Yes (Other)
  Sender: GILEAD
  Company Number: US-GILEAD-2020-0507276

PATIENT
  Age: 72 Year
  Sex: Male

DRUGS (10)
  1. AXICABTAGENE CILOLEUCEL [Suspect]
     Active Substance: AXICABTAGENE CILOLEUCEL
     Indication: Non-Hodgkin^s lymphoma
     Dosage: UNK
     Route: 065
  2. CYCLOPHOSPHAMIDE [Concomitant]
     Active Substance: CYCLOPHOSPHAMIDE
     Indication: Bone marrow conditioning regimen
  3. FLUDARABINE [Concomitant]
     Active Substance: FLUDARABINE PHOSPHATE
     Indication: Bone marrow conditioning regimen
  4. RITUXIMAB [Concomitant]
     Active Substance: RITUXIMAB
  5. DEXAMETHASONE [Concomitant]
     Active Substance: DEXAMETHASONE
  6. CYTARABINE [Concomitant]
     Active Substance: CYTARABINE
  7. CISPLATIN [Concomitant]
     Active Substance: CISPLATIN
  8. IFOSFAMIDE [Concomitant]
     Active Substance: IFOSFAMIDE
  9. CARBOPLATIN [Concomitant]
     Active Substance: CARBOPLATIN
  10. ETOPOSIDE PHOSPHATE [Concomitant]
     Active Substance: ETOPOSIDE PHOSPHATE

REACTIONS (1)
  - Malignant genitourinary tract neoplasm [Unknown]
